FAERS Safety Report 4348306-9 (Version None)
Quarter: 2004Q2

REPORT INFORMATION
  Report Type: 
  Country: None (occurrence: None)
  Receive Date: 20040422
  Receipt Date: 20040405
  Transmission Date: 20050107
  Serious: Yes (Death, Other)
  Sender: FDA-Public Use
  Company Number: JP_040402929

PATIENT
  Age: 72 Year
  Sex: Male
  Weight: 43 kg

DRUGS (1)
  1. GEMZAR [Suspect]
     Indication: PANCREATIC CARCINOMA
     Dosage: 1000 MG OTHER
     Route: 050
     Dates: start: 20030514, end: 20030618

REACTIONS (3)
  - CONTUSION [None]
  - FALL [None]
  - HAEMORRHAGE INTRACRANIAL [None]
